FAERS Safety Report 17853678 (Version 1)
Quarter: 2020Q2

REPORT INFORMATION
  Report Type: Spontaneous
  Country: US (occurrence: US)
  Receive Date: 20200602
  Receipt Date: 20200602
  Transmission Date: 20200714
  Serious: No
  Sender: FDA-Public Use
  Company Number: US-AMGEN INC.-USASP2020086278

PATIENT
  Age: 64 Year
  Sex: Male

DRUGS (1)
  1. AIMOVIG [Suspect]
     Active Substance: ERENUMAB-AOOE
     Indication: MIGRAINE
     Dosage: 140 MILLIGRAM (EVERY 25 DAYS)
     Route: 065
     Dates: start: 201806

REACTIONS (3)
  - Incorrect dose administered by device [Unknown]
  - Product administered at inappropriate site [Unknown]
  - Device issue [Unknown]

NARRATIVE: CASE EVENT DATE: 20200527
